FAERS Safety Report 7598476-4 (Version None)
Quarter: 2011Q3

REPORT INFORMATION
  Report Type: 
  Country: None (occurrence: None)
  Receive Date: 20110708
  Receipt Date: 20110628
  Transmission Date: 20111222
  Serious: Yes (Hospitalization)
  Sender: FDA-Public Use
  Company Number: JP-ELI_LILLY_AND_COMPANY-JP201105000016

PATIENT
  Sex: Female
  Weight: 52.2 kg

DRUGS (5)
  1. CISPLATIN [Concomitant]
     Indication: LUNG ADENOCARCINOMA RECURRENT
     Dosage: UNK
     Route: 042
     Dates: start: 20110118
  2. ALOXI [Concomitant]
     Dosage: UNK
     Route: 042
     Dates: start: 20110118
  3. ALIMTA [Suspect]
     Indication: LUNG ADENOCARCINOMA RECURRENT
     Dosage: UNK
     Route: 042
     Dates: start: 20110118
  4. EMEND [Concomitant]
     Dosage: UNK
     Route: 048
     Dates: start: 20110118
  5. STEROID ANTIBACTERIALS [Concomitant]
     Dosage: UNK
     Route: 042
     Dates: start: 20110118

REACTIONS (2)
  - PULMONARY EMBOLISM [None]
  - DEEP VEIN THROMBOSIS [None]
